FAERS Safety Report 5352500-8 (Version None)
Quarter: 2007Q2

REPORT INFORMATION
  Report Type: 
  Country: None (occurrence: None)
  Receive Date: 20070611
  Receipt Date: 20070530
  Transmission Date: 20071010
  Serious: Yes (Other)
  Sender: FDA-Public Use
  Company Number: US-PFIZER INC-2007044441

PATIENT
  Sex: Male
  Weight: 108.9 kg

DRUGS (6)
  1. LIPITOR [Suspect]
     Indication: BLOOD CHOLESTEROL INCREASED
  2. CELEBREX [Concomitant]
  3. FLUOXETINE [Concomitant]
     Dosage: DAILY DOSE:10MG
  4. ACETYLSALICYLIC ACID SRT [Concomitant]
  5. VITAMIN CAP [Concomitant]
  6. DRUG, UNSPECIFIED [Concomitant]

REACTIONS (11)
  - ARTHRALGIA [None]
  - BACK PAIN [None]
  - BLOOD CREATINE PHOSPHOKINASE INCREASED [None]
  - BLOOD PRESSURE ABNORMAL [None]
  - GAIT DISTURBANCE [None]
  - MOTOR DYSFUNCTION [None]
  - MYALGIA [None]
  - ROAD TRAFFIC ACCIDENT [None]
  - STENT PLACEMENT [None]
  - SURGERY [None]
  - SYNOVIAL CYST [None]
